FAERS Safety Report 8446103-6 (Version None)
Quarter: 2012Q2

REPORT INFORMATION
  Report Type: 
  Country: None (occurrence: None)
  Receive Date: 20120618
  Receipt Date: 20120608
  Transmission Date: 20120825
  Serious: Yes (Hospitalization)
  Sender: FDA-Public Use
  Company Number: US-ABBOTT-12P-163-0944369-00

PATIENT
  Age: 46 Year
  Sex: Female

DRUGS (4)
  1. VICODIN [Suspect]
     Indication: PRODUCT USED FOR UNKNOWN INDICATION
     Dosage: Q4HR PRN
  2. CONTRAST MEDIA [Suspect]
     Indication: PRODUCT USED FOR UNKNOWN INDICATION
     Route: 048
  3. CHEMOTHERAPEUTICS [Concomitant]
     Indication: OVARIAN CANCER METASTATIC
  4. MS CONTIN [Suspect]
     Indication: PRODUCT USED FOR UNKNOWN INDICATION
     Dosage: BID

REACTIONS (8)
  - SMALL INTESTINAL OBSTRUCTION [None]
  - PULMONARY EMBOLISM [None]
  - VOMITING [None]
  - ABDOMINAL PAIN [None]
  - CONSTIPATION [None]
  - FLATULENCE [None]
  - NAUSEA [None]
  - ASCITES [None]
